FAERS Safety Report 6482923-5 (Version None)
Quarter: 2009Q4

REPORT INFORMATION
  Report Type: 
  Country: None (occurrence: None)
  Receive Date: 20091209
  Receipt Date: 20091201
  Transmission Date: 20100525
  Serious: Yes (Hospitalization)
  Sender: FDA-Public Use
  Company Number: US-BAYER-200939375NA

PATIENT
  Age: 45 Year
  Sex: Female

DRUGS (5)
  1. AVELOX [Suspect]
     Indication: BRONCHITIS
     Dates: start: 20081205
  2. FLU SHOT [Suspect]
     Indication: DRUG USE FOR UNKNOWN INDICATION
     Dates: start: 20080101
  3. TESSALON [Concomitant]
  4. CONCERTA [Concomitant]
  5. NABUMETONE [Concomitant]

REACTIONS (2)
  - ANAPHYLACTIC SHOCK [None]
  - FLUSHING [None]
